FAERS Safety Report 14475763 (Version 1)
Quarter: 2018Q1

REPORT INFORMATION
  Report Type: Spontaneous
  Country: GB (occurrence: GB)
  Receive Date: 20180201
  Receipt Date: 20180201
  Transmission Date: 20180509
  Serious: Yes (Hospitalization)
  Sender: FDA-Public Use
  Company Number: GB-SHIRE-GB201801947

PATIENT

DRUGS (6)
  1. PREDNISONE. [Concomitant]
     Active Substance: PREDNISONE
     Indication: IMMUNOSUPPRESSION
  2. MEPREDNISONE [Suspect]
     Active Substance: MEPREDNISONE
     Indication: MULTIPLE ORGAN TRANSPLANT REJECTION
     Dosage: 1500 MG, ONE DOSE
     Route: 042
  3. ANTILYMPHOCYTE SERUM [Suspect]
     Active Substance: THYMOCYTE IMMUNE GLOBULIN NOS
     Indication: MULTIPLE ORGAN TRANSPLANT REJECTION
     Dosage: 700 MG, ONE DOSE
     Route: 065
  4. TACROLIMUS. [Concomitant]
     Active Substance: TACROLIMUS
     Indication: IMMUNOSUPPRESSION
  5. HUMAN NORMAL IMMUNOGLOBULIN [Suspect]
     Active Substance: HUMAN IMMUNOGLOBULIN G
     Indication: MULTIPLE ORGAN TRANSPLANT REJECTION
     Dosage: 4 MG/KG, ONE DOSE
     Route: 042
  6. MYCOPHENOLATE MOFETIL. [Concomitant]
     Active Substance: MYCOPHENOLATE MOFETIL
     Indication: IMMUNOSUPPRESSION

REACTIONS (4)
  - Skin lesion [Unknown]
  - Pyrexia [Unknown]
  - Peripheral swelling [Unknown]
  - Pain [Unknown]
